FAERS Safety Report 21577523 (Version 1)
Quarter: 2022Q4

REPORT INFORMATION
  Report Type: Spontaneous
  Country: FR (occurrence: FR)
  Receive Date: 20221110
  Receipt Date: 20221110
  Transmission Date: 20230113
  Serious: Yes (Hospitalization)
  Sender: FDA-Public Use
  Company Number: None

PATIENT
  Age: 40 Year
  Sex: Male

DRUGS (4)
  1. VALIUM [Suspect]
     Active Substance: DIAZEPAM
     Indication: Product used for unknown indication
     Dosage: NON RENSEIGNEE
  2. HEROIN [Suspect]
     Active Substance: DIAMORPHINE
     Indication: Product used for unknown indication
     Dosage: 4 LIGNES
     Route: 050
     Dates: start: 20220831, end: 20220831
  3. CANNABIS SATIVA SUBSP. INDICA TOP [Suspect]
     Active Substance: CANNABIS SATIVA SUBSP. INDICA TOP
     Indication: Product used for unknown indication
     Dosage: 3 JOINTS/JOUR
     Route: 050
     Dates: start: 2000
  4. COCAINE [Suspect]
     Active Substance: COCAINE
     Indication: Product used for unknown indication
     Dosage: NON RENSEIGNEE

REACTIONS (6)
  - Bradypnoea [Recovered/Resolved]
  - Respiratory acidosis [Recovered/Resolved]
  - Coma [Recovered/Resolved]
  - Drug abuse [Not Recovered/Not Resolved]
  - Pneumonia aspiration [Recovering/Resolving]
  - Miosis [Recovered/Resolved]

NARRATIVE: CASE EVENT DATE: 20220831
